FAERS Safety Report 10157200 (Version 2)
Quarter: 2014Q3

REPORT INFORMATION
  Report Type: Spontaneous
  Country: IT (occurrence: IT)
  Receive Date: 20140507
  Receipt Date: 20140717
  Transmission Date: 20150326
  Serious: Yes (Hospitalization)
  Sender: FDA-Public Use
  Company Number: IT-SA-2014SA058589

PATIENT
  Age: 47 Year
  Sex: Female

DRUGS (7)
  1. ENTACT [Concomitant]
     Active Substance: ESCITALOPRAM OXALATE
  2. LAROXYL [Concomitant]
     Active Substance: AMITRIPTYLINE
  3. STILNOX [Suspect]
     Active Substance: ZOLPIDEM TARTRATE
     Indication: PRODUCT USED FOR UNKNOWN INDICATION
     Dosage: 16 DOSAGE UNIT TOTAL
     Route: 048
     Dates: start: 20140417, end: 20140417
  4. GABAPENTIN. [Concomitant]
     Active Substance: GABAPENTIN
  5. EUTIROX [Concomitant]
     Active Substance: LEVOTHYROXINE SODIUM
  6. WELLBUTRIN [Concomitant]
     Active Substance: BUPROPION HYDROCHLORIDE
  7. RIVOTRIL [Concomitant]
     Active Substance: CLONAZEPAM

REACTIONS (2)
  - Drug abuse [Unknown]
  - Speech disorder [Recovered/Resolved]

NARRATIVE: CASE EVENT DATE: 20140417
